FAERS Safety Report 12422545 (Version 1)
Quarter: 2016Q2

REPORT INFORMATION
  Report Type: Spontaneous
  Country: US (occurrence: US)
  Receive Date: 20160601
  Receipt Date: 20160601
  Transmission Date: 20160815
  Serious: Yes (Other)
  Sender: FDA-Public Use
  Company Number: US-009507513-1605USA011041

PATIENT
  Sex: Female

DRUGS (4)
  1. REMERON [Suspect]
     Active Substance: MIRTAZAPINE
     Dosage: 30 MG AT BEDTIME
     Route: 048
  2. ABILIFY [Suspect]
     Active Substance: ARIPIPRAZOLE
     Indication: PRODUCT USED FOR UNKNOWN INDICATION
     Dosage: UNK
     Route: 048
  3. VENLAFAXINE HYDROCHLORIDE. [Concomitant]
     Active Substance: VENLAFAXINE HYDROCHLORIDE
     Dosage: 300 MG DAILY
  4. OLANZAPINE. [Concomitant]
     Active Substance: OLANZAPINE
     Dosage: 2.5(UNIT NOT REPROTED) AT BEDTIEM HS

REACTIONS (3)
  - Depression [Unknown]
  - Suicidal ideation [Unknown]
  - Back pain [Unknown]
